FAERS Safety Report 16499111 (Version 1)
Quarter: 2019Q3

REPORT INFORMATION
  Report Type: Spontaneous
  Country: US (occurrence: US)
  Receive Date: 20190701
  Receipt Date: 20190701
  Transmission Date: 20191004
  Serious: No
  Sender: FDA-Public Use
  Company Number: US-GLAXOSMITHKLINE-US2019115848

PATIENT
  Sex: Female

DRUGS (2)
  1. CARVEDILOL TABLET [Suspect]
     Active Substance: CARVEDILOL
     Indication: PRODUCT USED FOR UNKNOWN INDICATION
     Dosage: 3.25 MG, BID
     Route: 048
  2. COREG [Suspect]
     Active Substance: CARVEDILOL
     Indication: PRODUCT USED FOR UNKNOWN INDICATION
     Dosage: UNK
     Route: 065

REACTIONS (5)
  - Wheezing [Unknown]
  - Chest discomfort [Unknown]
  - Product availability issue [Unknown]
  - Ill-defined disorder [Unknown]
  - Product dose omission [Unknown]
